FAERS Safety Report 20961729 (Version 1)
Quarter: 2022Q2

REPORT INFORMATION
  Report Type: Spontaneous
  Country: AU (occurrence: AU)
  Receive Date: 20220615
  Receipt Date: 20220615
  Transmission Date: 20220720
  Serious: Yes (Death)
  Sender: FDA-Public Use
  Company Number: AU-drreddys-LIT/AUS/22/0151105

PATIENT
  Age: 53 Year
  Sex: Male

DRUGS (9)
  1. PREGABALIN [Suspect]
     Active Substance: PREGABALIN
     Indication: Product used for unknown indication
  2. OXYCODONE [Suspect]
     Active Substance: OXYCODONE
     Indication: Product used for unknown indication
     Route: 048
  3. OXYCODONE [Suspect]
     Active Substance: OXYCODONE
     Dosage: 10-20 MG
     Route: 048
  4. OXYCODONE [Suspect]
     Active Substance: OXYCODONE
     Dosage: 0.2 MG/L (0.2-0.5 MG/L)
  5. OXYCODONE [Suspect]
     Active Substance: OXYCODONE
     Dosage: UNSURE EXACT PRN, IN LAST 8.5 H
     Route: 048
  6. OXYCODONE [Suspect]
     Active Substance: OXYCODONE
     Route: 048
  7. FENTANYL [Suspect]
     Active Substance: FENTANYL
     Indication: Product used for unknown indication
     Dosage: 75-150 MICROGRAM, 2 HOURLY UNLESS SEDATION SCORE LESS THAN 2
     Route: 058
  8. FENTANYL [Suspect]
     Active Substance: FENTANYL
     Dosage: 4 MICROGRAM/L (0.6-3.9 MCG/L)
     Route: 058
  9. FENTANYL [Suspect]
     Active Substance: FENTANYL
     Route: 058

REACTIONS (1)
  - Toxicity to various agents [Fatal]
